FAERS Safety Report 17740895 (Version 4)
Quarter: 2020Q2

REPORT INFORMATION
  Report Type: Report from Study
  Country: DE (occurrence: DE)
  Receive Date: 20200504
  Receipt Date: 20200619
  Transmission Date: 20200714
  Serious: Yes (Life-Threatening, Other)
  Sender: FDA-Public Use
  Company Number: NVSC2020DE118864

PATIENT
  Sex: Female
  Weight: 64 kg

DRUGS (3)
  1. KISQALI [Suspect]
     Active Substance: RIBOCICLIB
     Dosage: 600 MG, QD (SCHEMA 21 DAYS INTAKE, 7 DAYS)
     Route: 048
     Dates: start: 20200317, end: 20200608
  2. KISQALI [Suspect]
     Active Substance: RIBOCICLIB
     Indication: BREAST CANCER METASTATIC
     Dosage: 600 MG, QD (SCHEMA 21 DAYS INTAKE, 7 DAYS PAUSE)
     Route: 048
     Dates: start: 20191211, end: 20200310
  3. LETROZOLE. [Suspect]
     Active Substance: LETROZOLE
     Indication: BREAST CANCER METASTATIC
     Dosage: 2.5 MG, QD
     Route: 048
     Dates: start: 20191211

REACTIONS (8)
  - Diarrhoea [Recovered/Resolved]
  - Fatigue [Unknown]
  - Neutrophil count decreased [Recovered/Resolved]
  - Rash maculo-papular [Unknown]
  - Neutrophil count decreased [Recovered/Resolved]
  - Neutropenia [Unknown]
  - Syncope [Recovered/Resolved]
  - Lacrimation increased [Unknown]

NARRATIVE: CASE EVENT DATE: 20200204
